FAERS Safety Report 5877069-0 (Version None)
Quarter: 2008Q3

REPORT INFORMATION
  Report Type: 
  Country: None (occurrence: None)
  Receive Date: 20080910
  Receipt Date: 20080903
  Transmission Date: 20090109
  Serious: Yes (Death)
  Sender: FDA-Public Use
  Company Number: PHBS2008US05608

PATIENT
  Age: 40 Year
  Sex: Male

DRUGS (3)
  1. CYCLOSPORINE [Suspect]
     Indication: LUNG TRANSPLANT
  2. AZATHIOPRINE [Suspect]
     Indication: LUNG TRANSPLANT
  3. PREDNISONE TAB [Suspect]
     Indication: LUNG TRANSPLANT

REACTIONS (17)
  - ANASTOMOTIC COMPLICATION [None]
  - ASPERGILLOSIS [None]
  - BRONCHIAL FISTULA [None]
  - EXCESSIVE GRANULATION TISSUE [None]
  - HAEMOPTYSIS [None]
  - KLEBSIELLA INFECTION [None]
  - LASER THERAPY [None]
  - LOBAR PNEUMONIA [None]
  - MYCOBACTERIUM AVIUM COMPLEX INFECTION [None]
  - RESPIRATORY DISORDER [None]
  - RESPIRATORY DISTRESS [None]
  - RESUSCITATION [None]
  - STENT OCCLUSION [None]
  - STENT PLACEMENT [None]
  - STENT REMOVAL [None]
  - THERAPEUTIC PROCEDURE [None]
  - WOUND DEHISCENCE [None]
